FAERS Safety Report 7933928-6 (Version None)
Quarter: 2011Q4

REPORT INFORMATION
  Report Type: 
  Country: None (occurrence: None)
  Receive Date: 20111122
  Receipt Date: 20111115
  Transmission Date: 20120403
  Serious: Yes (Other)
  Sender: FDA-Public Use
  Company Number: US-JNJFOC-20111106600

PATIENT
  Sex: Female
  Weight: 105.69 kg

DRUGS (1)
  1. REMICADE [Suspect]
     Indication: RHEUMATOID ARTHRITIS
     Route: 042
     Dates: start: 20110501, end: 20111109

REACTIONS (4)
  - CARDIAC DISORDER [None]
  - OEDEMA PERIPHERAL [None]
  - HYPOAESTHESIA [None]
  - INFUSION RELATED REACTION [None]
